FAERS Safety Report 9774812 (Version 3)
Quarter: 2014Q1

REPORT INFORMATION
  Report Type: Spontaneous
  Country: JP (occurrence: JP)
  Receive Date: 20131220
  Receipt Date: 20140115
  Transmission Date: 20141002
  Serious: Yes (Other)
  Sender: FDA-Public Use
  Company Number: JP-OTSUKA-JP-2013-16050

PATIENT
  Age: 70 Year
  Sex: Female

DRUGS (4)
  1. SAMSCA [Suspect]
     Indication: HEPATIC HYDROTHORAX
     Dosage: 3.75 MG MILLIGRAM(S), DAILY DOSE
     Route: 048
  2. SAMSCA [Suspect]
     Dosage: 7.5 MG MILLIGRAM(S), DAILY DOSE
     Route: 048
  3. LASIX [Concomitant]
     Dosage: UNK
     Route: 065
  4. ALDACTONE A [Concomitant]
     Dosage: UNK
     Route: 048

REACTIONS (1)
  - Hepatic encephalopathy [Recovered/Resolved]
